FAERS Safety Report 23651267 (Version 4)
Quarter: 2025Q3

REPORT INFORMATION
  Report Type: Spontaneous
  Country: CA (occurrence: CA)
  Receive Date: 20240320
  Receipt Date: 20250718
  Transmission Date: 20251021
  Serious: Yes (Death, Life-Threatening, Hospitalization, Disabling, Congenital Anomaly, Other)
  Sender: Haleon PLC
  Company Number: CA-002147023-NVSC2024CA054144

PATIENT
  Age: 43 Year
  Sex: Female
  Weight: 68 kg

DRUGS (498)
  1. DICLOFENAC DIETHYLAMINE [Suspect]
     Active Substance: DICLOFENAC DIETHYLAMINE
     Indication: Product used for unknown indication
  2. DICLOFENAC DIETHYLAMINE [Suspect]
     Active Substance: DICLOFENAC DIETHYLAMINE
  3. PSEUDOEPHEDRINE [Suspect]
     Active Substance: PSEUDOEPHEDRINE
     Indication: Product used for unknown indication
  4. SULFAMETHOXAZOLE [Suspect]
     Active Substance: SULFAMETHOXAZOLE
     Indication: Product used for unknown indication
  5. SULFAMETHOXAZOLE [Suspect]
     Active Substance: SULFAMETHOXAZOLE
  6. SULFAMETHOXAZOLE [Suspect]
     Active Substance: SULFAMETHOXAZOLE
  7. OXYCODONE TEREPHTHALATE [Suspect]
     Active Substance: OXYCODONE TEREPHTHALATE
     Indication: Product used for unknown indication
  8. OXYCODONE TEREPHTHALATE [Suspect]
     Active Substance: OXYCODONE TEREPHTHALATE
  9. OXYCODONE TEREPHTHALATE [Suspect]
     Active Substance: OXYCODONE TEREPHTHALATE
  10. TRAMADOL HYDROCHLORIDE [Suspect]
     Active Substance: TRAMADOL HYDROCHLORIDE
     Indication: Product used for unknown indication
  11. TRAMADOL HYDROCHLORIDE [Suspect]
     Active Substance: TRAMADOL HYDROCHLORIDE
  12. TRAMADOL HYDROCHLORIDE [Suspect]
     Active Substance: TRAMADOL HYDROCHLORIDE
  13. TRAMADOL HYDROCHLORIDE [Suspect]
     Active Substance: TRAMADOL HYDROCHLORIDE
  14. TRAMADOL HYDROCHLORIDE [Suspect]
     Active Substance: TRAMADOL HYDROCHLORIDE
  15. TRAMADOL HYDROCHLORIDE [Suspect]
     Active Substance: TRAMADOL HYDROCHLORIDE
  16. PANTOPRAZOLE SODIUM ANHYDROUS [Concomitant]
     Active Substance: PANTOPRAZOLE SODIUM ANHYDROUS
     Indication: Product used for unknown indication
  17. PANTOPRAZOLE SODIUM ANHYDROUS [Concomitant]
     Active Substance: PANTOPRAZOLE SODIUM ANHYDROUS
  18. PANTOPRAZOLE SODIUM ANHYDROUS [Concomitant]
     Active Substance: PANTOPRAZOLE SODIUM ANHYDROUS
  19. CLIOQUINOL\FLUMETHASONE [Suspect]
     Active Substance: CLIOQUINOL\FLUMETHASONE
     Indication: Rheumatoid arthritis
     Route: 050
  20. CLIOQUINOL\FLUMETHASONE [Suspect]
     Active Substance: CLIOQUINOL\FLUMETHASONE
  21. CLIOQUINOL\FLUMETHASONE [Suspect]
     Active Substance: CLIOQUINOL\FLUMETHASONE
  22. DICLOFENAC POTASSIUM [Suspect]
     Active Substance: DICLOFENAC POTASSIUM
     Indication: Product used for unknown indication
  23. DICLOFENAC POTASSIUM [Suspect]
     Active Substance: DICLOFENAC POTASSIUM
  24. DICLOFENAC POTASSIUM [Suspect]
     Active Substance: DICLOFENAC POTASSIUM
  25. RISEDRONATE SODIUM [Concomitant]
     Active Substance: RISEDRONATE SODIUM
     Indication: Product used for unknown indication
  26. RISEDRONATE SODIUM [Concomitant]
     Active Substance: RISEDRONATE SODIUM
  27. RISEDRONATE SODIUM [Concomitant]
     Active Substance: RISEDRONATE SODIUM
  28. CELECOXIB [Suspect]
     Active Substance: CELECOXIB
     Indication: Rheumatoid arthritis
     Dosage: 2 DOSAGE FORM, QD (1 EVERY 1 DAYS), TABLET, ORAL USE
  29. CELECOXIB [Suspect]
     Active Substance: CELECOXIB
     Dosage: UNK, QD, TABLET, ORAL USE
  30. CELECOXIB [Suspect]
     Active Substance: CELECOXIB
     Route: 050
  31. CELECOXIB [Suspect]
     Active Substance: CELECOXIB
  32. CELECOXIB [Suspect]
     Active Substance: CELECOXIB
     Dosage: UNK, QD, TABLET, ORAL USE
     Route: 050
  33. CELECOXIB [Suspect]
     Active Substance: CELECOXIB
     Dosage: UNK, TABLET
     Route: 050
  34. CELECOXIB [Suspect]
     Active Substance: CELECOXIB
  35. ERGOCALCIFEROL [Concomitant]
     Active Substance: ERGOCALCIFEROL
     Indication: Product used for unknown indication
  36. ERGOCALCIFEROL [Concomitant]
     Active Substance: ERGOCALCIFEROL
  37. ERGOCALCIFEROL [Concomitant]
     Active Substance: ERGOCALCIFEROL
  38. INFLIXIMAB [Suspect]
     Active Substance: INFLIXIMAB
     Indication: Rheumatoid arthritis
     Route: 050
  39. INFLIXIMAB [Suspect]
     Active Substance: INFLIXIMAB
     Indication: Product used for unknown indication
  40. INFLIXIMAB [Suspect]
     Active Substance: INFLIXIMAB
  41. INFLIXIMAB [Suspect]
     Active Substance: INFLIXIMAB
  42. FOSAMAX [Suspect]
     Active Substance: ALENDRONATE SODIUM
     Indication: Rheumatoid arthritis
     Route: 050
  43. FOSAMAX [Suspect]
     Active Substance: ALENDRONATE SODIUM
     Route: 050
  44. FOSAMAX [Suspect]
     Active Substance: ALENDRONATE SODIUM
  45. DOXYCYCLINE HYCLATE [Suspect]
     Active Substance: DOXYCYCLINE HYCLATE
     Indication: Product used for unknown indication
  46. MYCOPHENOLATE MOFETIL [Suspect]
     Active Substance: MYCOPHENOLATE MOFETIL
     Indication: Product used for unknown indication
  47. MYCOPHENOLATE MOFETIL [Suspect]
     Active Substance: MYCOPHENOLATE MOFETIL
  48. MYCOPHENOLATE MOFETIL [Suspect]
     Active Substance: MYCOPHENOLATE MOFETIL
  49. ENBREL [Suspect]
     Active Substance: ETANERCEPT
     Indication: Rheumatoid arthritis
  50. ENBREL [Suspect]
     Active Substance: ETANERCEPT
     Indication: Product used for unknown indication
     Dosage: 50 MG, WE, ROA: SUBCUTANEOUS
     Route: 050
  51. ENBREL [Suspect]
     Active Substance: ETANERCEPT
     Dosage: 50 MG, WE, SUBCUTANEOUS
     Route: 050
  52. DICLOFENAC SODIUM [Suspect]
     Active Substance: DICLOFENAC SODIUM
     Indication: Product used for unknown indication
  53. DICLOFENAC SODIUM [Suspect]
     Active Substance: DICLOFENAC SODIUM
  54. DICLOFENAC SODIUM [Suspect]
     Active Substance: DICLOFENAC SODIUM
  55. DICLOFENAC SODIUM [Suspect]
     Active Substance: DICLOFENAC SODIUM
  56. DICLOFENAC SODIUM [Suspect]
     Active Substance: DICLOFENAC SODIUM
  57. CALCIUM LACTATE [Suspect]
     Active Substance: CALCIUM LACTATE
     Indication: Product used for unknown indication
  58. CALCIUM LACTATE [Suspect]
     Active Substance: CALCIUM LACTATE
  59. CALCIUM LACTATE [Suspect]
     Active Substance: CALCIUM LACTATE
  60. LYRICA [Suspect]
     Active Substance: PREGABALIN
     Indication: Product used for unknown indication
  61. LYRICA [Suspect]
     Active Substance: PREGABALIN
  62. LYRICA [Suspect]
     Active Substance: PREGABALIN
  63. RITUXIMAB [Suspect]
     Active Substance: RITUXIMAB
     Indication: Rheumatoid arthritis
     Route: 050
  64. RITUXIMAB [Suspect]
     Active Substance: RITUXIMAB
  65. RITUXIMAB [Suspect]
     Active Substance: RITUXIMAB
     Route: 050
  66. RITUXIMAB [Suspect]
     Active Substance: RITUXIMAB
  67. RITUXIMAB [Suspect]
     Active Substance: RITUXIMAB
     Route: 050
  68. RITUXIMAB [Suspect]
     Active Substance: RITUXIMAB
  69. RITUXIMAB [Suspect]
     Active Substance: RITUXIMAB
  70. RITUXIMAB [Suspect]
     Active Substance: RITUXIMAB
     Route: 050
  71. ELBASVIR [Concomitant]
     Active Substance: ELBASVIR
     Indication: Product used for unknown indication
  72. ELBASVIR [Concomitant]
     Active Substance: ELBASVIR
  73. ELBASVIR [Concomitant]
     Active Substance: ELBASVIR
  74. METHOTREXATE SODIUM [Suspect]
     Active Substance: METHOTREXATE SODIUM
     Indication: Rheumatoid arthritis
  75. METHOTREXATE SODIUM [Suspect]
     Active Substance: METHOTREXATE SODIUM
     Dosage: 2 MG, QD, CONCENTRATE FOR SOLUTION FOR INFUSION, ORAL
     Route: 050
  76. ISOPROPYL ALCOHOL [Suspect]
     Active Substance: ISOPROPYL ALCOHOL
     Indication: Product used for unknown indication
  77. ISOPROPYL ALCOHOL [Suspect]
     Active Substance: ISOPROPYL ALCOHOL
  78. ISOPROPYL ALCOHOL [Suspect]
     Active Substance: ISOPROPYL ALCOHOL
  79. PREGABALIN [Suspect]
     Active Substance: PREGABALIN
     Indication: Rheumatoid arthritis
  80. PREGABALIN [Suspect]
     Active Substance: PREGABALIN
     Indication: Product used for unknown indication
  81. PREGABALIN [Suspect]
     Active Substance: PREGABALIN
  82. PREGABALIN [Suspect]
     Active Substance: PREGABALIN
  83. PREGABALIN [Suspect]
     Active Substance: PREGABALIN
  84. PREGABALIN [Suspect]
     Active Substance: PREGABALIN
  85. PREGABALIN [Suspect]
     Active Substance: PREGABALIN
  86. PREGABALIN [Suspect]
     Active Substance: PREGABALIN
  87. COSENTYX [Suspect]
     Active Substance: SECUKINUMAB
     Indication: Psoriatic arthropathy
  88. COSENTYX [Suspect]
     Active Substance: SECUKINUMAB
  89. COSENTYX [Suspect]
     Active Substance: SECUKINUMAB
  90. COSENTYX [Suspect]
     Active Substance: SECUKINUMAB
  91. FLUMETHASONE PIVALATE [Suspect]
     Active Substance: FLUMETHASONE PIVALATE
     Indication: Rheumatoid arthritis
  92. FLUMETHASONE PIVALATE [Suspect]
     Active Substance: FLUMETHASONE PIVALATE
  93. FLUMETHASONE PIVALATE [Suspect]
     Active Substance: FLUMETHASONE PIVALATE
  94. CAFFEINE [Concomitant]
     Active Substance: CAFFEINE
     Indication: Product used for unknown indication
  95. CAFFEINE [Concomitant]
     Active Substance: CAFFEINE
  96. CAFFEINE [Concomitant]
     Active Substance: CAFFEINE
  97. PANTOPRAZOLE SODIUM [Concomitant]
     Active Substance: PANTOPRAZOLE SODIUM
     Indication: Product used for unknown indication
  98. PANTOPRAZOLE SODIUM [Concomitant]
     Active Substance: PANTOPRAZOLE SODIUM
  99. QUETIAPINE FUMARATE [Concomitant]
     Active Substance: QUETIAPINE FUMARATE
     Indication: Product used for unknown indication
  100. QUETIAPINE FUMARATE [Concomitant]
     Active Substance: QUETIAPINE FUMARATE
  101. QUETIAPINE FUMARATE [Concomitant]
     Active Substance: QUETIAPINE FUMARATE
  102. QUETIAPINE FUMARATE [Concomitant]
     Active Substance: QUETIAPINE FUMARATE
  103. STELARA [Suspect]
     Active Substance: USTEKINUMAB
     Indication: Rheumatoid arthritis
  104. STELARA [Suspect]
     Active Substance: USTEKINUMAB
  105. STELARA [Suspect]
     Active Substance: USTEKINUMAB
  106. STELARA [Suspect]
     Active Substance: USTEKINUMAB
  107. STELARA [Suspect]
     Active Substance: USTEKINUMAB
  108. STELARA [Suspect]
     Active Substance: USTEKINUMAB
  109. STELARA [Suspect]
     Active Substance: USTEKINUMAB
     Route: 050
  110. STELARA [Suspect]
     Active Substance: USTEKINUMAB
     Route: 050
  111. OXYCODONE [Suspect]
     Active Substance: OXYCODONE
     Indication: Product used for unknown indication
  112. OXYCODONE [Suspect]
     Active Substance: OXYCODONE
  113. OXYCODONE [Suspect]
     Active Substance: OXYCODONE
  114. HYDROXYCHLOROQUINE SULFATE [Suspect]
     Active Substance: HYDROXYCHLOROQUINE SULFATE
     Indication: Rheumatoid arthritis
     Dosage: 400 MG, QD, TABLET, URETHRAL
     Route: 050
  115. HYDROXYCHLOROQUINE SULFATE [Suspect]
     Active Substance: HYDROXYCHLOROQUINE SULFATE
     Indication: Product used for unknown indication
     Dosage: 400 MG, QD, TABLET, ORAL
     Route: 050
  116. PHTHALYLSULFATHIAZOLE [Suspect]
     Active Substance: PHTHALYLSULFATHIAZOLE
     Indication: Rheumatoid arthritis
     Route: 050
  117. PHTHALYLSULFATHIAZOLE [Suspect]
     Active Substance: PHTHALYLSULFATHIAZOLE
  118. PHTHALYLSULFATHIAZOLE [Suspect]
     Active Substance: PHTHALYLSULFATHIAZOLE
     Route: 050
  119. PHTHALYLSULFATHIAZOLE [Suspect]
     Active Substance: PHTHALYLSULFATHIAZOLE
  120. PHTHALYLSULFATHIAZOLE [Suspect]
     Active Substance: PHTHALYLSULFATHIAZOLE
  121. PHTHALYLSULFATHIAZOLE [Suspect]
     Active Substance: PHTHALYLSULFATHIAZOLE
  122. PHTHALYLSULFATHIAZOLE [Suspect]
     Active Substance: PHTHALYLSULFATHIAZOLE
     Dosage: 400 MG, QD (1 EVERY 1 DAYS)
  123. PHTHALYLSULFATHIAZOLE [Suspect]
     Active Substance: PHTHALYLSULFATHIAZOLE
     Dosage: 1000 MG, BID (2 EVERY 1 DAYS)
  124. CALCIUM CHLORIDE [Suspect]
     Active Substance: CALCIUM CHLORIDE
     Indication: Product used for unknown indication
  125. CALCIUM CHLORIDE [Suspect]
     Active Substance: CALCIUM CHLORIDE
  126. CALCIUM CHLORIDE [Suspect]
     Active Substance: CALCIUM CHLORIDE
  127. TOCILIZUMAB [Suspect]
     Active Substance: TOCILIZUMAB
     Indication: Product used for unknown indication
  128. TOCILIZUMAB [Suspect]
     Active Substance: TOCILIZUMAB
  129. TOCILIZUMAB [Suspect]
     Active Substance: TOCILIZUMAB
     Route: 050
  130. TOCILIZUMAB [Suspect]
     Active Substance: TOCILIZUMAB
  131. TOCILIZUMAB [Suspect]
     Active Substance: TOCILIZUMAB
  132. TOCILIZUMAB [Suspect]
     Active Substance: TOCILIZUMAB
  133. ALENDRONIC ACID [Suspect]
     Active Substance: ALENDRONIC ACID
     Indication: Rheumatoid arthritis
     Route: 050
  134. ALENDRONIC ACID [Suspect]
     Active Substance: ALENDRONIC ACID
     Indication: Product used for unknown indication
  135. ALENDRONIC ACID [Suspect]
     Active Substance: ALENDRONIC ACID
  136. ALENDRONIC ACID [Suspect]
     Active Substance: ALENDRONIC ACID
     Route: 048
  137. ALENDRONIC ACID [Suspect]
     Active Substance: ALENDRONIC ACID
  138. ALENDRONIC ACID [Suspect]
     Active Substance: ALENDRONIC ACID
  139. ALENDRONIC ACID [Suspect]
     Active Substance: ALENDRONIC ACID
     Route: 050
  140. ALENDRONIC ACID [Suspect]
     Active Substance: ALENDRONIC ACID
  141. ALENDRONIC ACID [Suspect]
     Active Substance: ALENDRONIC ACID
  142. ALENDRONIC ACID [Suspect]
     Active Substance: ALENDRONIC ACID
  143. ALENDRONIC ACID [Suspect]
     Active Substance: ALENDRONIC ACID
  144. CERTOLIZUMAB PEGOL [Suspect]
     Active Substance: CERTOLIZUMAB PEGOL
     Indication: Product used for unknown indication
  145. CERTOLIZUMAB PEGOL [Suspect]
     Active Substance: CERTOLIZUMAB PEGOL
  146. CERTOLIZUMAB PEGOL [Suspect]
     Active Substance: CERTOLIZUMAB PEGOL
  147. CETIRIZINE HYDROCHLORIDE [Suspect]
     Active Substance: CETIRIZINE HYDROCHLORIDE
     Indication: Rheumatoid arthritis
  148. CETIRIZINE HYDROCHLORIDE [Suspect]
     Active Substance: CETIRIZINE HYDROCHLORIDE
  149. CETIRIZINE HYDROCHLORIDE [Suspect]
     Active Substance: CETIRIZINE HYDROCHLORIDE
  150. CETIRIZINE HYDROCHLORIDE [Suspect]
     Active Substance: CETIRIZINE HYDROCHLORIDE
  151. CETIRIZINE HYDROCHLORIDE [Suspect]
     Active Substance: CETIRIZINE HYDROCHLORIDE
  152. CETIRIZINE HYDROCHLORIDE [Suspect]
     Active Substance: CETIRIZINE HYDROCHLORIDE
  153. CETIRIZINE HYDROCHLORIDE [Suspect]
     Active Substance: CETIRIZINE HYDROCHLORIDE
  154. CETIRIZINE HYDROCHLORIDE [Suspect]
     Active Substance: CETIRIZINE HYDROCHLORIDE
  155. CETIRIZINE HYDROCHLORIDE [Suspect]
     Active Substance: CETIRIZINE HYDROCHLORIDE
  156. CETIRIZINE HYDROCHLORIDE [Suspect]
     Active Substance: CETIRIZINE HYDROCHLORIDE
  157. CETIRIZINE HYDROCHLORIDE [Suspect]
     Active Substance: CETIRIZINE HYDROCHLORIDE
  158. CETIRIZINE HYDROCHLORIDE [Suspect]
     Active Substance: CETIRIZINE HYDROCHLORIDE
  159. CETIRIZINE HYDROCHLORIDE [Suspect]
     Active Substance: CETIRIZINE HYDROCHLORIDE
  160. CETIRIZINE HYDROCHLORIDE [Suspect]
     Active Substance: CETIRIZINE HYDROCHLORIDE
  161. CETIRIZINE HYDROCHLORIDE [Suspect]
     Active Substance: CETIRIZINE HYDROCHLORIDE
  162. CETIRIZINE HYDROCHLORIDE [Suspect]
     Active Substance: CETIRIZINE HYDROCHLORIDE
  163. CETIRIZINE HYDROCHLORIDE [Suspect]
     Active Substance: CETIRIZINE HYDROCHLORIDE
  164. CETIRIZINE HYDROCHLORIDE [Suspect]
     Active Substance: CETIRIZINE HYDROCHLORIDE
  165. CORTISONE ACETATE [Suspect]
     Active Substance: CORTISONE ACETATE
     Indication: Rheumatoid arthritis
  166. CORTISONE ACETATE [Suspect]
     Active Substance: CORTISONE ACETATE
     Indication: Product used for unknown indication
     Route: 050
  167. CORTISONE ACETATE [Suspect]
     Active Substance: CORTISONE ACETATE
  168. CORTISONE ACETATE [Suspect]
     Active Substance: CORTISONE ACETATE
     Route: 050
  169. CORTISONE ACETATE [Suspect]
     Active Substance: CORTISONE ACETATE
  170. PSEUDOEPHEDRINE HYDROCHLORIDE [Suspect]
     Active Substance: PSEUDOEPHEDRINE HYDROCHLORIDE
     Indication: Rheumatoid arthritis
  171. PSEUDOEPHEDRINE HYDROCHLORIDE [Suspect]
     Active Substance: PSEUDOEPHEDRINE HYDROCHLORIDE
  172. PSEUDOEPHEDRINE HYDROCHLORIDE [Suspect]
     Active Substance: PSEUDOEPHEDRINE HYDROCHLORIDE
  173. PSEUDOEPHEDRINE HYDROCHLORIDE [Suspect]
     Active Substance: PSEUDOEPHEDRINE HYDROCHLORIDE
  174. PSEUDOEPHEDRINE HYDROCHLORIDE [Suspect]
     Active Substance: PSEUDOEPHEDRINE HYDROCHLORIDE
  175. PSEUDOEPHEDRINE HYDROCHLORIDE [Suspect]
     Active Substance: PSEUDOEPHEDRINE HYDROCHLORIDE
  176. CETIRIZINE HYDROCHLORIDE\PSEUDOEPHEDRINE HYDROCHLORIDE [Suspect]
     Active Substance: CETIRIZINE HYDROCHLORIDE\PSEUDOEPHEDRINE HYDROCHLORIDE
     Indication: Rheumatoid arthritis
     Dosage: 10 MG, DOSE FORM: PROLONGED-RELEASE TABLET
  177. CETIRIZINE HYDROCHLORIDE\PSEUDOEPHEDRINE HYDROCHLORIDE [Suspect]
     Active Substance: CETIRIZINE HYDROCHLORIDE\PSEUDOEPHEDRINE HYDROCHLORIDE
  178. CETIRIZINE HYDROCHLORIDE\PSEUDOEPHEDRINE HYDROCHLORIDE [Suspect]
     Active Substance: CETIRIZINE HYDROCHLORIDE\PSEUDOEPHEDRINE HYDROCHLORIDE
  179. CETIRIZINE HYDROCHLORIDE\PSEUDOEPHEDRINE HYDROCHLORIDE [Suspect]
     Active Substance: CETIRIZINE HYDROCHLORIDE\PSEUDOEPHEDRINE HYDROCHLORIDE
  180. CETIRIZINE HYDROCHLORIDE\PSEUDOEPHEDRINE HYDROCHLORIDE [Suspect]
     Active Substance: CETIRIZINE HYDROCHLORIDE\PSEUDOEPHEDRINE HYDROCHLORIDE
     Route: 050
  181. CETIRIZINE HYDROCHLORIDE\PSEUDOEPHEDRINE HYDROCHLORIDE [Suspect]
     Active Substance: CETIRIZINE HYDROCHLORIDE\PSEUDOEPHEDRINE HYDROCHLORIDE
  182. TOFACITINIB CITRATE [Suspect]
     Active Substance: TOFACITINIB CITRATE
     Indication: Rheumatoid arthritis
     Dosage: 10 MG, QD (5 MG, BID)
  183. TOFACITINIB CITRATE [Suspect]
     Active Substance: TOFACITINIB CITRATE
     Indication: Psoriatic arthropathy
  184. TOFACITINIB CITRATE [Suspect]
     Active Substance: TOFACITINIB CITRATE
     Dosage: 5 MG, QD, TABLET
  185. TOFACITINIB CITRATE [Suspect]
     Active Substance: TOFACITINIB CITRATE
     Dosage: 5 MG, QD, TABLET
  186. TOFACITINIB CITRATE [Suspect]
     Active Substance: TOFACITINIB CITRATE
     Dosage: 5 MG, TABLET, ORAL USE
     Route: 050
  187. TOFACITINIB CITRATE [Suspect]
     Active Substance: TOFACITINIB CITRATE
     Dosage: 5 MG, WE, TABLET ROA : ORAL
     Route: 050
  188. TOFACITINIB CITRATE [Suspect]
     Active Substance: TOFACITINIB CITRATE
     Dosage: 10 MG, QD, TABLET
  189. TOFACITINIB CITRATE [Suspect]
     Active Substance: TOFACITINIB CITRATE
     Dosage: 5 MG BID, TABLET
  190. ERELZI [Suspect]
     Active Substance: ETANERCEPT-SZZS
     Indication: Rheumatoid arthritis
     Route: 050
  191. ERELZI [Suspect]
     Active Substance: ETANERCEPT-SZZS
  192. ERELZI [Suspect]
     Active Substance: ETANERCEPT-SZZS
  193. ERELZI [Suspect]
     Active Substance: ETANERCEPT-SZZS
  194. ERELZI [Suspect]
     Active Substance: ETANERCEPT-SZZS
     Route: 050
  195. ERELZI [Suspect]
     Active Substance: ETANERCEPT-SZZS
  196. ERELZI [Suspect]
     Active Substance: ETANERCEPT-SZZS
  197. ERELZI [Suspect]
     Active Substance: ETANERCEPT-SZZS
     Route: 050
  198. ERELZI [Suspect]
     Active Substance: ETANERCEPT-SZZS
  199. ERELZI [Suspect]
     Active Substance: ETANERCEPT-SZZS
     Route: 050
  200. ERELZI [Suspect]
     Active Substance: ETANERCEPT-SZZS
     Route: 050
  201. ERELZI [Suspect]
     Active Substance: ETANERCEPT-SZZS
  202. APREMILAST [Suspect]
     Active Substance: APREMILAST
     Indication: Product used for unknown indication
  203. PANTOPRAZOLE SODIUM [Concomitant]
     Active Substance: PANTOPRAZOLE SODIUM
     Indication: Product used for unknown indication
  204. ARAVA [Suspect]
     Active Substance: LEFLUNOMIDE
     Indication: Rheumatoid arthritis
  205. ARAVA [Suspect]
     Active Substance: LEFLUNOMIDE
  206. ARAVA [Suspect]
     Active Substance: LEFLUNOMIDE
  207. ARAVA [Suspect]
     Active Substance: LEFLUNOMIDE
  208. ARAVA [Suspect]
     Active Substance: LEFLUNOMIDE
     Dosage: 20 MG, TABLET
     Route: 050
  209. ARAVA [Suspect]
     Active Substance: LEFLUNOMIDE
     Route: 050
  210. ARAVA [Suspect]
     Active Substance: LEFLUNOMIDE
  211. ARAVA [Suspect]
     Active Substance: LEFLUNOMIDE
     Route: 050
  212. ARAVA [Suspect]
     Active Substance: LEFLUNOMIDE
  213. PIROXICAM [Concomitant]
     Active Substance: PIROXICAM
     Indication: Product used for unknown indication
  214. PIROXICAM [Concomitant]
     Active Substance: PIROXICAM
  215. PIROXICAM [Concomitant]
     Active Substance: PIROXICAM
  216. FISH OIL [Concomitant]
     Active Substance: FISH OIL
     Indication: Product used for unknown indication
  217. FISH OIL [Concomitant]
     Active Substance: FISH OIL
  218. FISH OIL [Concomitant]
     Active Substance: FISH OIL
  219. PREDNISOLONE [Concomitant]
     Active Substance: PREDNISOLONE
     Indication: Product used for unknown indication
  220. PREDNISOLONE [Concomitant]
     Active Substance: PREDNISOLONE
  221. PREDNISOLONE [Concomitant]
     Active Substance: PREDNISOLONE
  222. ORENCIA [Suspect]
     Active Substance: ABATACEPT
     Indication: Rheumatoid arthritis
  223. ORENCIA [Suspect]
     Active Substance: ABATACEPT
  224. ORENCIA [Suspect]
     Active Substance: ABATACEPT
  225. ORENCIA [Suspect]
     Active Substance: ABATACEPT
  226. ORENCIA [Suspect]
     Active Substance: ABATACEPT
  227. ORENCIA [Suspect]
     Active Substance: ABATACEPT
  228. ORENCIA [Suspect]
     Active Substance: ABATACEPT
  229. ORENCIA [Suspect]
     Active Substance: ABATACEPT
  230. ORENCIA [Suspect]
     Active Substance: ABATACEPT
  231. ORENCIA [Suspect]
     Active Substance: ABATACEPT
  232. ORENCIA [Suspect]
     Active Substance: ABATACEPT
  233. ORENCIA [Suspect]
     Active Substance: ABATACEPT
  234. ORENCIA [Suspect]
     Active Substance: ABATACEPT
  235. ORENCIA [Suspect]
     Active Substance: ABATACEPT
  236. MAGNESIUM [Concomitant]
     Active Substance: MAGNESIUM
     Indication: Product used for unknown indication
  237. MAGNESIUM [Concomitant]
     Active Substance: MAGNESIUM
  238. XELJANZ [Suspect]
     Active Substance: TOFACITINIB CITRATE
     Indication: Rheumatoid arthritis
     Route: 050
  239. XELJANZ [Suspect]
     Active Substance: TOFACITINIB CITRATE
     Indication: Product used for unknown indication
     Dosage: 5 MG, QD, TABLET, ORAL USE
  240. XELJANZ [Suspect]
     Active Substance: TOFACITINIB CITRATE
     Dosage: 5 MG, WE, TABLET, ORAL USE
  241. XELJANZ [Suspect]
     Active Substance: TOFACITINIB CITRATE
     Route: 050
  242. XELJANZ [Suspect]
     Active Substance: TOFACITINIB CITRATE
     Route: 050
  243. XELJANZ [Suspect]
     Active Substance: TOFACITINIB CITRATE
  244. XELJANZ [Suspect]
     Active Substance: TOFACITINIB CITRATE
     Dosage: 5 MG, QW, TABLET , ORAL
     Route: 050
  245. XELJANZ [Suspect]
     Active Substance: TOFACITINIB CITRATE
     Dosage: 5 MG, BID, TABLET, ORAL USE
     Route: 050
  246. XELJANZ [Suspect]
     Active Substance: TOFACITINIB CITRATE
  247. XELJANZ [Suspect]
     Active Substance: TOFACITINIB CITRATE
     Route: 050
  248. XELJANZ [Suspect]
     Active Substance: TOFACITINIB CITRATE
  249. XELJANZ [Suspect]
     Active Substance: TOFACITINIB CITRATE
     Dosage: 5 MG, QD
     Route: 050
  250. RAMIPRIL [Concomitant]
     Active Substance: RAMIPRIL
     Indication: Product used for unknown indication
  251. RAMIPRIL [Concomitant]
     Active Substance: RAMIPRIL
  252. RAMIPRIL [Concomitant]
     Active Substance: RAMIPRIL
  253. HYDROCORTISONE [Suspect]
     Active Substance: HYDROCORTISONE
     Indication: Product used for unknown indication
  254. HYDROCORTISONE [Suspect]
     Active Substance: HYDROCORTISONE
  255. HYDROCORTISONE [Suspect]
     Active Substance: HYDROCORTISONE
  256. HYDROCORTISONE [Suspect]
     Active Substance: HYDROCORTISONE
  257. CALCIUM CARBONATE [Suspect]
     Active Substance: CALCIUM CARBONATE
     Indication: Product used for unknown indication
  258. CALCIUM CARBONATE [Suspect]
     Active Substance: CALCIUM CARBONATE
  259. CALCIUM CARBONATE [Suspect]
     Active Substance: CALCIUM CARBONATE
  260. CALCIUM CARBONATE [Suspect]
     Active Substance: CALCIUM CARBONATE
  261. CALCIUM CARBONATE [Suspect]
     Active Substance: CALCIUM CARBONATE
  262. CALCIUM CARBONATE [Suspect]
     Active Substance: CALCIUM CARBONATE
  263. METHOTREXATE [Suspect]
     Active Substance: METHOTREXATE
     Indication: Rheumatoid arthritis
     Dosage: 20 MG, QD
     Route: 048
  264. METHOTREXATE [Suspect]
     Active Substance: METHOTREXATE
     Dosage: 25 MG, QD
  265. METHOTREXATE [Suspect]
     Active Substance: METHOTREXATE
     Dosage: 15 MG, QD
     Route: 048
  266. METHOTREXATE [Suspect]
     Active Substance: METHOTREXATE
     Dosage: 2 MG, QD (1 MG, BID)
     Route: 048
  267. METHOTREXATE [Suspect]
     Active Substance: METHOTREXATE
     Dosage: 20 MG, QD
     Route: 050
  268. METHOTREXATE [Suspect]
     Active Substance: METHOTREXATE
     Dosage: 20 MG, QD
  269. METHOTREXATE [Suspect]
     Active Substance: METHOTREXATE
     Dosage: 2 MG, QD (1 MG, BID)
     Route: 048
  270. METHOTREXATE [Suspect]
     Active Substance: METHOTREXATE
     Dosage: 20 MG, WE
     Route: 048
  271. METHOTREXATE [Suspect]
     Active Substance: METHOTREXATE
     Dosage: 25 MG, QD
     Route: 058
  272. METHOTREXATE [Suspect]
     Active Substance: METHOTREXATE
     Dosage: 2 G QD
     Route: 050
  273. METHOTREXATE [Suspect]
     Active Substance: METHOTREXATE
     Route: 050
  274. METHOTREXATE [Suspect]
     Active Substance: METHOTREXATE
     Route: 050
  275. METHOTREXATE [Suspect]
     Active Substance: METHOTREXATE
  276. METHOTREXATE [Suspect]
     Active Substance: METHOTREXATE
  277. METHOTREXATE [Suspect]
     Active Substance: METHOTREXATE
     Dosage: 25 MG, QD
     Route: 050
  278. METHOTREXATE [Suspect]
     Active Substance: METHOTREXATE
     Route: 050
  279. METHOTREXATE [Suspect]
     Active Substance: METHOTREXATE
     Route: 050
  280. METHOTREXATE [Suspect]
     Active Substance: METHOTREXATE
     Dosage: 1 G, BID (2 G, QD)
  281. METHOTREXATE [Suspect]
     Active Substance: METHOTREXATE
  282. METHOTREXATE [Suspect]
     Active Substance: METHOTREXATE
  283. METHOTREXATE [Suspect]
     Active Substance: METHOTREXATE
  284. METHOTREXATE [Suspect]
     Active Substance: METHOTREXATE
     Route: 050
  285. METHOTREXATE [Suspect]
     Active Substance: METHOTREXATE
     Route: 050
  286. METHOTREXATE [Suspect]
     Active Substance: METHOTREXATE
     Route: 050
  287. METHOTREXATE [Suspect]
     Active Substance: METHOTREXATE
     Route: 050
  288. METHOTREXATE [Suspect]
     Active Substance: METHOTREXATE
     Dosage: 20 MG, QD
     Route: 050
  289. METHOTREXATE [Suspect]
     Active Substance: METHOTREXATE
     Dosage: 20 MG, QD
     Route: 050
  290. METHOTREXATE [Suspect]
     Active Substance: METHOTREXATE
     Dosage: UNK, QD (20000 UNK, QD)
  291. METHOTREXATE [Suspect]
     Active Substance: METHOTREXATE
     Dosage: 1 DOSAGE FORM, QW
  292. METHOTREXATE [Suspect]
     Active Substance: METHOTREXATE
     Dosage: 1 DOSAGE FORM, QW
  293. METHOTREXATE [Suspect]
     Active Substance: METHOTREXATE
     Route: 050
  294. METHOTREXATE [Suspect]
     Active Substance: METHOTREXATE
     Route: 050
  295. METHOTREXATE [Suspect]
     Active Substance: METHOTREXATE
     Dosage: 25 MG, QW
     Route: 050
  296. METHOTREXATE [Suspect]
     Active Substance: METHOTREXATE
  297. METHOTREXATE [Suspect]
     Active Substance: METHOTREXATE
     Dosage: UNK, QD
     Route: 050
  298. METHOTREXATE [Suspect]
     Active Substance: METHOTREXATE
     Route: 050
  299. METHOTREXATE [Suspect]
     Active Substance: METHOTREXATE
     Route: 050
  300. HUMIRA [Suspect]
     Active Substance: ADALIMUMAB
     Indication: Rheumatoid arthritis
     Route: 058
  301. HUMIRA [Suspect]
     Active Substance: ADALIMUMAB
     Indication: Psoriatic arthropathy
  302. NAPROXEN SODIUM [Suspect]
     Active Substance: NAPROXEN SODIUM
     Indication: Product used for unknown indication
  303. NAPROXEN SODIUM [Suspect]
     Active Substance: NAPROXEN SODIUM
     Indication: Rheumatoid arthritis
  304. NAPROXEN SODIUM [Suspect]
     Active Substance: NAPROXEN SODIUM
  305. NAPROXEN SODIUM [Suspect]
     Active Substance: NAPROXEN SODIUM
  306. GLUCOSAMINE [Concomitant]
     Active Substance: GLUCOSAMINE
     Indication: Product used for unknown indication
  307. GLUCOSAMINE [Concomitant]
     Active Substance: GLUCOSAMINE
  308. GLUCOSAMINE [Concomitant]
     Active Substance: GLUCOSAMINE
  309. PREDNISONE [Suspect]
     Active Substance: PREDNISONE
     Indication: Rheumatoid arthritis
     Route: 050
  310. PREDNISONE [Suspect]
     Active Substance: PREDNISONE
  311. PREDNISONE [Suspect]
     Active Substance: PREDNISONE
  312. PREGABALIN [Suspect]
     Active Substance: PREGABALIN
     Indication: Product used for unknown indication
  313. PREDNISONE [Suspect]
     Active Substance: PREDNISONE
     Indication: Rheumatoid arthritis
  314. PREDNISONE [Suspect]
     Active Substance: PREDNISONE
  315. PREDNISONE [Suspect]
     Active Substance: PREDNISONE
  316. PREDNISONE [Suspect]
     Active Substance: PREDNISONE
  317. PREDNISONE [Suspect]
     Active Substance: PREDNISONE
  318. PREDNISONE [Suspect]
     Active Substance: PREDNISONE
  319. HYDROXYCHLOROQUINE [Suspect]
     Active Substance: HYDROXYCHLOROQUINE
     Indication: Rheumatoid arthritis
     Dosage: 40 MG, QD
  320. HYDROXYCHLOROQUINE [Suspect]
     Active Substance: HYDROXYCHLOROQUINE
     Dosage: 400 MG, QD
     Route: 050
  321. HYDROXYCHLOROQUINE [Suspect]
     Active Substance: HYDROXYCHLOROQUINE
     Dosage: 400 MG, QD
     Route: 048
  322. HYDROXYCHLOROQUINE [Suspect]
     Active Substance: HYDROXYCHLOROQUINE
     Dosage: 400 MG, QD
     Route: 048
  323. HYDROXYCHLOROQUINE [Suspect]
     Active Substance: HYDROXYCHLOROQUINE
     Dosage: 420 MG, QD
  324. HYDROXYCHLOROQUINE [Suspect]
     Active Substance: HYDROXYCHLOROQUINE
     Dosage: 400 MG, QD
  325. PREDNISONE [Suspect]
     Active Substance: PREDNISONE
     Indication: Rheumatoid arthritis
     Route: 048
  326. PREDNISONE [Suspect]
     Active Substance: PREDNISONE
     Indication: Condition aggravated
     Route: 050
  327. PREDNISONE [Suspect]
     Active Substance: PREDNISONE
     Indication: Psoriatic arthropathy
     Route: 050
  328. PREDNISONE [Suspect]
     Active Substance: PREDNISONE
  329. PREDNISONE [Suspect]
     Active Substance: PREDNISONE
     Route: 050
  330. PREDNISONE [Suspect]
     Active Substance: PREDNISONE
  331. PREDNISONE [Suspect]
     Active Substance: PREDNISONE
     Route: 050
  332. PREDNISONE [Suspect]
     Active Substance: PREDNISONE
     Route: 050
  333. PREDNISONE [Suspect]
     Active Substance: PREDNISONE
     Route: 050
  334. CALCIUM GLUBIONATE [Concomitant]
     Active Substance: CALCIUM GLUBIONATE
     Indication: Product used for unknown indication
  335. CALCIUM GLUBIONATE [Concomitant]
     Active Substance: CALCIUM GLUBIONATE
  336. CALCIUM GLUBIONATE [Concomitant]
     Active Substance: CALCIUM GLUBIONATE
  337. LISINOPRIL [Concomitant]
     Active Substance: LISINOPRIL
     Indication: Product used for unknown indication
  338. LISINOPRIL [Concomitant]
     Active Substance: LISINOPRIL
  339. LISINOPRIL [Concomitant]
     Active Substance: LISINOPRIL
  340. PREDNISONE [Suspect]
     Active Substance: PREDNISONE
     Indication: Rheumatoid arthritis
  341. PREDNISONE [Suspect]
     Active Substance: PREDNISONE
  342. PREDNISONE [Suspect]
     Active Substance: PREDNISONE
  343. PREDNISONE [Suspect]
     Active Substance: PREDNISONE
  344. PREDNISONE [Suspect]
     Active Substance: PREDNISONE
     Route: 050
  345. PREDNISONE [Suspect]
     Active Substance: PREDNISONE
  346. ACETAMINOPHEN [Suspect]
     Active Substance: ACETAMINOPHEN
     Indication: Product used for unknown indication
  347. ACETAMINOPHEN [Suspect]
     Active Substance: ACETAMINOPHEN
  348. CELEBREX [Suspect]
     Active Substance: CELECOXIB
     Indication: Rheumatoid arthritis
     Route: 048
  349. CELEBREX [Suspect]
     Active Substance: CELECOXIB
  350. CELEBREX [Suspect]
     Active Substance: CELECOXIB
  351. DESOXIMETASONE [Suspect]
     Active Substance: DESOXIMETASONE
     Indication: Rheumatoid arthritis
     Route: 050
  352. DESOXIMETASONE [Suspect]
     Active Substance: DESOXIMETASONE
     Indication: Product used for unknown indication
     Route: 050
  353. DESOXIMETASONE [Suspect]
     Active Substance: DESOXIMETASONE
     Route: 050
  354. DESOXIMETASONE [Suspect]
     Active Substance: DESOXIMETASONE
     Route: 048
  355. DESOXIMETASONE [Suspect]
     Active Substance: DESOXIMETASONE
  356. DESOXIMETASONE [Suspect]
     Active Substance: DESOXIMETASONE
  357. DESOXIMETASONE [Suspect]
     Active Substance: DESOXIMETASONE
  358. DESOXIMETASONE [Suspect]
     Active Substance: DESOXIMETASONE
  359. DESOXIMETASONE [Suspect]
     Active Substance: DESOXIMETASONE
     Dosage: 20 MG, WE
     Route: 048
  360. DESOXIMETASONE [Suspect]
     Active Substance: DESOXIMETASONE
     Route: 050
  361. DESOXIMETASONE [Suspect]
     Active Substance: DESOXIMETASONE
     Route: 058
  362. DESOXIMETASONE [Suspect]
     Active Substance: DESOXIMETASONE
  363. DESOXIMETASONE [Suspect]
     Active Substance: DESOXIMETASONE
     Dosage: 25 MG (1 EVERY 1 WEEKS)
     Route: 048
  364. LEFLUNOMIDE [Suspect]
     Active Substance: LEFLUNOMIDE
     Indication: Rheumatoid arthritis
     Route: 050
  365. LEFLUNOMIDE [Suspect]
     Active Substance: LEFLUNOMIDE
     Indication: Product used for unknown indication
     Route: 050
  366. LEFLUNOMIDE [Suspect]
     Active Substance: LEFLUNOMIDE
     Route: 048
  367. LEFLUNOMIDE [Suspect]
     Active Substance: LEFLUNOMIDE
     Dosage: 20 MG, QD
  368. IBUPROFEN [Concomitant]
     Active Substance: IBUPROFEN
     Indication: Product used for unknown indication
  369. IBUPROFEN [Concomitant]
     Active Substance: IBUPROFEN
  370. IBUPROFEN [Concomitant]
     Active Substance: IBUPROFEN
  371. NAPROXEN [Suspect]
     Active Substance: NAPROXEN
     Indication: Rheumatoid arthritis
     Dosage: 1000 MG, QD (500 MG, BID)
  372. NAPROXEN [Suspect]
     Active Substance: NAPROXEN
     Dosage: 500 MG, BID (1000 MG, QD)
  373. FOLIC ACID [Suspect]
     Active Substance: FOLIC ACID
     Indication: Rheumatoid arthritis
  374. FOLIC ACID [Suspect]
     Active Substance: FOLIC ACID
     Route: 048
  375. FOLIC ACID [Suspect]
     Active Substance: FOLIC ACID
     Route: 050
  376. FOLIC ACID [Suspect]
     Active Substance: FOLIC ACID
  377. FOLIC ACID [Suspect]
     Active Substance: FOLIC ACID
  378. FOLIC ACID [Suspect]
     Active Substance: FOLIC ACID
  379. FOLIC ACID [Suspect]
     Active Substance: FOLIC ACID
     Route: 050
  380. FOLIC ACID [Suspect]
     Active Substance: FOLIC ACID
  381. FOLIC ACID [Suspect]
     Active Substance: FOLIC ACID
  382. CIMZIA [Suspect]
     Active Substance: CERTOLIZUMAB PEGOL
     Indication: Rheumatoid arthritis
     Route: 050
  383. CIMZIA [Suspect]
     Active Substance: CERTOLIZUMAB PEGOL
     Indication: Product used for unknown indication
     Route: 050
  384. CIMZIA [Suspect]
     Active Substance: CERTOLIZUMAB PEGOL
     Indication: Psoriasis
     Route: 058
  385. CIMZIA [Suspect]
     Active Substance: CERTOLIZUMAB PEGOL
     Route: 050
  386. CIMZIA [Suspect]
     Active Substance: CERTOLIZUMAB PEGOL
     Route: 048
  387. CIMZIA [Suspect]
     Active Substance: CERTOLIZUMAB PEGOL
     Route: 058
  388. CIMZIA [Suspect]
     Active Substance: CERTOLIZUMAB PEGOL
     Route: 050
  389. CIMZIA [Suspect]
     Active Substance: CERTOLIZUMAB PEGOL
     Route: 050
  390. SULFASALAZINE [Suspect]
     Active Substance: SULFASALAZINE
     Indication: Rheumatoid arthritis
     Dosage: 1000 MG, QD (500 MG, BID)
  391. SULFASALAZINE [Suspect]
     Active Substance: SULFASALAZINE
     Indication: Product used for unknown indication
     Route: 048
  392. SULFASALAZINE [Suspect]
     Active Substance: SULFASALAZINE
     Dosage: 1 G, QD
  393. SULFASALAZINE [Suspect]
     Active Substance: SULFASALAZINE
     Dosage: 1 G
     Route: 048
  394. SULFASALAZINE [Suspect]
     Active Substance: SULFASALAZINE
     Dosage: 2 G, QD (1 G, BID)
     Route: 050
  395. SULFASALAZINE [Suspect]
     Active Substance: SULFASALAZINE
  396. SULFASALAZINE [Suspect]
     Active Substance: SULFASALAZINE
     Dosage: 2 G, (2 EVERY 1 DAYS)
     Route: 050
  397. SULFASALAZINE [Suspect]
     Active Substance: SULFASALAZINE
     Dosage: 2G (2 EVERY 1 DAYS)
  398. SULFASALAZINE [Suspect]
     Active Substance: SULFASALAZINE
     Dosage: 1000 MG, BID (2 EVERY 1 DAYS)
  399. SULFASALAZINE [Suspect]
     Active Substance: SULFASALAZINE
     Dosage: 2 G Q12H
     Route: 050
  400. SULFASALAZINE [Suspect]
     Active Substance: SULFASALAZINE
     Dosage: 1 G Q12H
     Route: 050
  401. SULFASALAZINE [Suspect]
     Active Substance: SULFASALAZINE
     Dosage: 1000 MG (1 EVERY 1 DAYS)
     Route: 050
  402. SULFASALAZINE [Suspect]
     Active Substance: SULFASALAZINE
     Dosage: 500 MG, BID (1000 MG, QD)
     Route: 050
  403. SULFASALAZINE [Suspect]
     Active Substance: SULFASALAZINE
  404. SULFASALAZINE [Suspect]
     Active Substance: SULFASALAZINE
     Route: 050
  405. SULFASALAZINE [Suspect]
     Active Substance: SULFASALAZINE
     Route: 050
  406. SULFASALAZINE [Suspect]
     Active Substance: SULFASALAZINE
     Route: 050
  407. SULFASALAZINE [Suspect]
     Active Substance: SULFASALAZINE
     Route: 050
  408. SULFASALAZINE [Suspect]
     Active Substance: SULFASALAZINE
     Route: 050
  409. SULFASALAZINE [Suspect]
     Active Substance: SULFASALAZINE
     Route: 050
  410. SULFASALAZINE [Suspect]
     Active Substance: SULFASALAZINE
  411. SULFASALAZINE [Suspect]
     Active Substance: SULFASALAZINE
  412. SULFASALAZINE [Suspect]
     Active Substance: SULFASALAZINE
     Route: 050
  413. SULFASALAZINE [Suspect]
     Active Substance: SULFASALAZINE
     Route: 050
  414. SULFASALAZINE [Suspect]
     Active Substance: SULFASALAZINE
     Route: 050
  415. SULFASALAZINE [Suspect]
     Active Substance: SULFASALAZINE
  416. SULFASALAZINE [Suspect]
     Active Substance: SULFASALAZINE
     Route: 050
  417. ATIVAN [Concomitant]
     Active Substance: LORAZEPAM
     Indication: Anxiety
  418. REMICADE [Suspect]
     Active Substance: INFLIXIMAB
     Indication: Rheumatoid arthritis
     Route: 050
  419. REMICADE [Suspect]
     Active Substance: INFLIXIMAB
     Route: 050
  420. REMICADE [Suspect]
     Active Substance: INFLIXIMAB
     Route: 042
  421. MELOXICAM [Concomitant]
     Active Substance: MELOXICAM
     Indication: Product used for unknown indication
  422. MELOXICAM [Concomitant]
     Active Substance: MELOXICAM
  423. MELOXICAM [Concomitant]
     Active Substance: MELOXICAM
  424. LANSOPRAZOLE [Concomitant]
     Active Substance: LANSOPRAZOLE
     Indication: Product used for unknown indication
  425. LANSOPRAZOLE [Concomitant]
     Active Substance: LANSOPRAZOLE
  426. LANSOPRAZOLE [Concomitant]
     Active Substance: LANSOPRAZOLE
  427. LANSOPRAZOLE [Concomitant]
     Active Substance: LANSOPRAZOLE
  428. LANSOPRAZOLE [Concomitant]
     Active Substance: LANSOPRAZOLE
  429. CHOLECALCIFEROL [Concomitant]
     Active Substance: CHOLECALCIFEROL
     Indication: Product used for unknown indication
  430. CHOLECALCIFEROL [Concomitant]
     Active Substance: CHOLECALCIFEROL
  431. CHOLECALCIFEROL [Concomitant]
     Active Substance: CHOLECALCIFEROL
  432. SIMPONI [Suspect]
     Active Substance: GOLIMUMAB
     Indication: Rheumatoid arthritis
     Dosage: 50 MG, DOSE FORM: SOLUTION
     Route: 050
  433. SIMPONI [Suspect]
     Active Substance: GOLIMUMAB
     Route: 050
  434. SIMPONI [Suspect]
     Active Substance: GOLIMUMAB
     Route: 050
  435. SIMPONI [Suspect]
     Active Substance: GOLIMUMAB
  436. SIMPONI [Suspect]
     Active Substance: GOLIMUMAB
     Route: 050
  437. SIMPONI [Suspect]
     Active Substance: GOLIMUMAB
     Route: 050
  438. SIMPONI [Suspect]
     Active Substance: GOLIMUMAB
     Route: 050
  439. CALCIUM GLUCONATE [Suspect]
     Active Substance: CALCIUM GLUCONATE
     Indication: Product used for unknown indication
  440. CALCIUM GLUCONATE [Suspect]
     Active Substance: CALCIUM GLUCONATE
  441. CALCIUM GLUCONATE [Suspect]
     Active Substance: CALCIUM GLUCONATE
  442. OTEZLA [Suspect]
     Active Substance: APREMILAST
     Indication: Rheumatoid arthritis
     Dosage: 3 MG, BID (2 EVERY 1 DAYS)
     Route: 050
  443. OTEZLA [Suspect]
     Active Substance: APREMILAST
     Route: 048
  444. ACTEMRA [Suspect]
     Active Substance: TOCILIZUMAB
     Indication: Rheumatoid arthritis
     Route: 050
  445. ACTEMRA [Suspect]
     Active Substance: TOCILIZUMAB
     Indication: Product used for unknown indication
  446. ACTEMRA [Suspect]
     Active Substance: TOCILIZUMAB
     Route: 050
  447. ACTEMRA [Suspect]
     Active Substance: TOCILIZUMAB
  448. ACTEMRA [Suspect]
     Active Substance: TOCILIZUMAB
     Route: 050
  449. ACTEMRA [Suspect]
     Active Substance: TOCILIZUMAB
     Route: 050
  450. ACTEMRA [Suspect]
     Active Substance: TOCILIZUMAB
  451. ACTEMRA [Suspect]
     Active Substance: TOCILIZUMAB
  452. ACTEMRA [Suspect]
     Active Substance: TOCILIZUMAB
  453. ACTEMRA [Suspect]
     Active Substance: TOCILIZUMAB
  454. ACTEMRA [Suspect]
     Active Substance: TOCILIZUMAB
  455. ACTEMRA [Suspect]
     Active Substance: TOCILIZUMAB
  456. ACTEMRA [Suspect]
     Active Substance: TOCILIZUMAB
     Route: 050
  457. ACTEMRA [Suspect]
     Active Substance: TOCILIZUMAB
     Route: 050
  458. ACTEMRA [Suspect]
     Active Substance: TOCILIZUMAB
     Route: 050
  459. ACTEMRA [Suspect]
     Active Substance: TOCILIZUMAB
  460. ACTEMRA [Suspect]
     Active Substance: TOCILIZUMAB
     Route: 050
  461. ACTEMRA [Suspect]
     Active Substance: TOCILIZUMAB
  462. ACTEMRA [Suspect]
     Active Substance: TOCILIZUMAB
     Route: 050
  463. ACTEMRA [Suspect]
     Active Substance: TOCILIZUMAB
     Route: 050
  464. ACTEMRA [Suspect]
     Active Substance: TOCILIZUMAB
  465. ACTEMRA [Suspect]
     Active Substance: TOCILIZUMAB
  466. ACTEMRA [Suspect]
     Active Substance: TOCILIZUMAB
  467. ACTEMRA [Suspect]
     Active Substance: TOCILIZUMAB
  468. GOLIMUMAB [Suspect]
     Active Substance: GOLIMUMAB
     Indication: Product used for unknown indication
  469. GOLIMUMAB [Suspect]
     Active Substance: GOLIMUMAB
  470. GOLIMUMAB [Suspect]
     Active Substance: GOLIMUMAB
  471. DOXYCYCLINE [Suspect]
     Active Substance: DOXYCYCLINE
     Indication: Product used for unknown indication
  472. VITAMIN D3 [Concomitant]
     Active Substance: CHOLECALCIFEROL
     Indication: Product used for unknown indication
  473. VITAMIN D3 [Concomitant]
     Active Substance: CHOLECALCIFEROL
  474. VITAMIN D3 [Concomitant]
     Active Substance: CHOLECALCIFEROL
  475. ASCORBIC ACID [Suspect]
     Active Substance: ASCORBIC ACID
     Indication: Product used for unknown indication
  476. ASCORBIC ACID [Suspect]
     Active Substance: ASCORBIC ACID
  477. ASCORBIC ACID [Suspect]
     Active Substance: ASCORBIC ACID
  478. QUETIAPINE [Concomitant]
     Active Substance: QUETIAPINE
     Indication: Product used for unknown indication
  479. QUETIAPINE [Concomitant]
     Active Substance: QUETIAPINE
  480. QUETIAPINE [Concomitant]
     Active Substance: QUETIAPINE
  481. QUETIAPINE FUMARATE [Concomitant]
     Active Substance: QUETIAPINE FUMARATE
     Indication: Product used for unknown indication
  482. QUETIAPINE FUMARATE [Concomitant]
     Active Substance: QUETIAPINE FUMARATE
  483. ALENDRONATE SODIUM [Suspect]
     Active Substance: ALENDRONATE SODIUM
     Indication: Rheumatoid arthritis
     Route: 048
  484. MINERALS\VITAMINS [Concomitant]
     Active Substance: MINERALS\VITAMINS
     Indication: Product used for unknown indication
  485. CHLORAPREP [Suspect]
     Active Substance: CHLORHEXIDINE GLUCONATE\ISOPROPYL ALCOHOL
     Indication: Product used for unknown indication
  486. CHLORAPREP [Suspect]
     Active Substance: CHLORHEXIDINE GLUCONATE\ISOPROPYL ALCOHOL
  487. CHLORAPREP [Suspect]
     Active Substance: CHLORHEXIDINE GLUCONATE\ISOPROPYL ALCOHOL
  488. NEOMYCIN [Suspect]
     Active Substance: NEOMYCIN
     Indication: Product used for unknown indication
  489. NEOMYCIN [Suspect]
     Active Substance: NEOMYCIN
  490. NEOMYCIN [Suspect]
     Active Substance: NEOMYCIN
  491. CETIRIZINE HYDROCHLORIDE\PSEUDOEPHEDRINE HYDROCHLORIDE [Suspect]
     Active Substance: CETIRIZINE HYDROCHLORIDE\PSEUDOEPHEDRINE HYDROCHLORIDE
     Indication: Rheumatoid arthritis
     Route: 048
  492. CETIRIZINE HYDROCHLORIDE\PSEUDOEPHEDRINE HYDROCHLORIDE [Suspect]
     Active Substance: CETIRIZINE HYDROCHLORIDE\PSEUDOEPHEDRINE HYDROCHLORIDE
     Route: 048
  493. KEVZARA [Suspect]
     Active Substance: SARILUMAB
     Indication: Rheumatoid arthritis
  494. KEVZARA [Suspect]
     Active Substance: SARILUMAB
  495. KEVZARA [Suspect]
     Active Substance: SARILUMAB
  496. LORAZEPAM [Concomitant]
     Active Substance: LORAZEPAM
     Indication: Product used for unknown indication
  497. CYANOCOBALAMIN [Concomitant]
     Active Substance: CYANOCOBALAMIN
     Indication: Product used for unknown indication
  498. CYANOCOBALAMIN [Concomitant]
     Active Substance: CYANOCOBALAMIN

REACTIONS (70)
  - Type 2 diabetes mellitus [Fatal]
  - Liver injury [Not Recovered/Not Resolved]
  - Sleep disorder [Not Recovered/Not Resolved]
  - Gait inability [Not Recovered/Not Resolved]
  - Injury [Not Recovered/Not Resolved]
  - Peripheral swelling [Fatal]
  - Hypertension [Not Recovered/Not Resolved]
  - Leukopenia [Not Recovered/Not Resolved]
  - Therapeutic product effect decreased [Not Recovered/Not Resolved]
  - Hypertransaminasaemia [Not Recovered/Not Resolved]
  - Sciatica [Not Recovered/Not Resolved]
  - Drug hypersensitivity [Not Recovered/Not Resolved]
  - Pain [Fatal]
  - Lower respiratory tract infection [Not Recovered/Not Resolved]
  - Pruritus [Not Recovered/Not Resolved]
  - Joint swelling [Not Recovered/Not Resolved]
  - Prescribed overdose [Not Recovered/Not Resolved]
  - Liver disorder [Not Recovered/Not Resolved]
  - Pericarditis [Not Recovered/Not Resolved]
  - Therapeutic response decreased [Not Recovered/Not Resolved]
  - Pemphigus [Not Recovered/Not Resolved]
  - Drug ineffective [Not Recovered/Not Resolved]
  - Maternal exposure during pregnancy [Fatal]
  - Nausea [Not Recovered/Not Resolved]
  - Infusion related reaction [Fatal]
  - Off label use [Not Recovered/Not Resolved]
  - Sinusitis [Not Recovered/Not Resolved]
  - Mobility decreased [Not Recovered/Not Resolved]
  - Lupus vulgaris [Not Recovered/Not Resolved]
  - Rheumatoid factor positive [Fatal]
  - Swelling [Not Recovered/Not Resolved]
  - Synovitis [Not Recovered/Not Resolved]
  - Rheumatic fever [Fatal]
  - Hypersensitivity [Fatal]
  - Therapy non-responder [Not Recovered/Not Resolved]
  - Treatment failure [Not Recovered/Not Resolved]
  - Irritable bowel syndrome [Not Recovered/Not Resolved]
  - Oedema [Fatal]
  - Product use in unapproved indication [Not Recovered/Not Resolved]
  - Musculoskeletal stiffness [Not Recovered/Not Resolved]
  - Hypoaesthesia [Not Recovered/Not Resolved]
  - Rash [Fatal]
  - Muscle injury [Not Recovered/Not Resolved]
  - Nasopharyngitis [Not Recovered/Not Resolved]
  - Swollen joint count increased [Not Recovered/Not Resolved]
  - Psoriatic arthropathy [Not Recovered/Not Resolved]
  - Product use issue [Not Recovered/Not Resolved]
  - Malaise [Not Recovered/Not Resolved]
  - Decreased appetite [Not Recovered/Not Resolved]
  - Ulcer haemorrhage [Not Recovered/Not Resolved]
  - Abdominal discomfort [Fatal]
  - Anxiety [Fatal]
  - Autoimmune disorder [Fatal]
  - Blister [Fatal]
  - C-reactive protein [Fatal]
  - Fatigue [Fatal]
  - Pregnancy [Fatal]
  - Abdominal pain upper [Fatal]
  - Alopecia [Fatal]
  - Arthralgia [Fatal]
  - Asthma [Fatal]
  - Blood cholesterol increased [Fatal]
  - Deep vein thrombosis postoperative [Fatal]
  - Live birth [Fatal]
  - Asthenia [Fatal]
  - Chest pain [Fatal]
  - Lower limb fracture [Fatal]
  - Osteoarthritis [Fatal]
  - C-reactive protein abnormal [Fatal]
  - Anti-cyclic citrullinated peptide antibody positive [Fatal]
